FAERS Safety Report 13202962 (Version 1)
Quarter: 2017Q1

REPORT INFORMATION
  Report Type: Spontaneous
  Country: US (occurrence: US)
  Receive Date: 20170208
  Receipt Date: 20170208
  Transmission Date: 20170428
  Serious: No
  Sender: FDA-Public Use
  Company Number: US-AMGEN-USASL2016044778

PATIENT
  Sex: Male

DRUGS (2)
  1. NEULASTA [Suspect]
     Active Substance: PEGFILGRASTIM
     Indication: PRODUCT USED FOR UNKNOWN INDICATION
     Dosage: UNK
     Route: 065
  2. DEXAMETHASONE. [Concomitant]
     Active Substance: DEXAMETHASONE
     Dosage: 4MG 2 TABS BY MOUTH THE DAY AFTER CHEMO, THEN 2 TIMES A DAY FOR 2 DAYS FOLLOWING CHEMOTHERAPY
     Route: 048

REACTIONS (3)
  - Wrong technique in product usage process [Unknown]
  - Nausea [Unknown]
  - Application site irritation [Unknown]
